FAERS Safety Report 6137043-6 (Version None)
Quarter: 2009Q1

REPORT INFORMATION
  Report Type: 
  Country: None (occurrence: None)
  Receive Date: 20090326
  Receipt Date: 20090326
  Transmission Date: 20090719
  Serious: Yes (Other)
  Sender: FDA-Public Use
  Company Number: None

PATIENT
  Age: 49 Year
  Sex: Female
  Weight: 72.5755 kg

DRUGS (4)
  1. SEROQUEL [Suspect]
     Indication: BIPOLAR DISORDER
     Dosage: 100 MG DAILY AT BEDTIME DAILY PO
     Route: 048
     Dates: start: 20080701, end: 20090325
  2. SEROQUEL [Suspect]
     Indication: DEPRESSION
     Dosage: 100 MG DAILY AT BEDTIME DAILY PO
     Route: 048
     Dates: start: 20080701, end: 20090325
  3. SEROQUEL [Suspect]
     Indication: OBSESSIVE-COMPULSIVE DISORDER
     Dosage: 100 MG DAILY AT BEDTIME DAILY PO
     Route: 048
     Dates: start: 20080701, end: 20090325
  4. SEROQUEL [Suspect]
     Indication: PANIC DISORDER
     Dosage: 100 MG DAILY AT BEDTIME DAILY PO
     Route: 048
     Dates: start: 20080701, end: 20090325

REACTIONS (18)
  - ASTHENIA [None]
  - BLOOD CHOLESTEROL INCREASED [None]
  - BLOOD GLUCOSE DECREASED [None]
  - BODY TEMPERATURE DECREASED [None]
  - BRUXISM [None]
  - DYSPEPSIA [None]
  - EPISTAXIS [None]
  - FLUID RETENTION [None]
  - HEADACHE [None]
  - HYPERHIDROSIS [None]
  - OROPHARYNGEAL PAIN [None]
  - RASH [None]
  - RESTLESSNESS [None]
  - RHINORRHOEA [None]
  - TINNITUS [None]
  - TREMOR [None]
  - UNEVALUABLE EVENT [None]
  - WEIGHT INCREASED [None]
